FAERS Safety Report 13998961 (Version 1)
Quarter: 2017Q3

REPORT INFORMATION
  Report Type: Spontaneous
  Country: US (occurrence: US)
  Receive Date: 20170921
  Receipt Date: 20170921
  Transmission Date: 20171128
  Serious: No
  Sender: FDA-Public Use
  Company Number: US-BAYER-2017-180188

PATIENT
  Age: 70 Year
  Sex: Male
  Weight: 109 kg

DRUGS (4)
  1. LATANOPROST. [Concomitant]
     Active Substance: LATANOPROST
     Dosage: UNK
  2. TIMOLOL MALEATE. [Concomitant]
     Active Substance: TIMOLOL MALEATE
     Dosage: UNK
  3. METFORMIN [Concomitant]
     Active Substance: METFORMIN HYDROCHLORIDE
     Dosage: UNK
  4. MIRALAX [Suspect]
     Active Substance: POLYETHYLENE GLYCOL 3350
     Indication: GASTROINTESTINAL DISORDER
     Dosage: UNK
     Route: 048
     Dates: start: 201708

REACTIONS (1)
  - Product use issue [Unknown]

NARRATIVE: CASE EVENT DATE: 201708
